FAERS Safety Report 12601660 (Version 1)
Quarter: 2016Q3

REPORT INFORMATION
  Report Type: Spontaneous
  Country: US (occurrence: None)
  Receive Date: 20160727
  Receipt Date: 20160727
  Transmission Date: 20161109
  Serious: No
  Sender: FDA-Public Use
  Company Number: None

PATIENT
  Sex: Female
  Weight: 90.72 kg

DRUGS (12)
  1. ALLOPURINOL 300 MG [Suspect]
     Active Substance: ALLOPURINOL
     Indication: PROPHYLAXIS
     Dosage: 1 PILL DAILY, MOUTH
     Route: 048
     Dates: start: 20160112
  2. LEOTHYROXINE [Concomitant]
  3. ASPRIN [Concomitant]
     Active Substance: ASPIRIN
  4. SIMVASTATIN. [Concomitant]
     Active Substance: SIMVASTATIN
  5. ULORIC [Concomitant]
     Active Substance: FEBUXOSTAT
  6. VITAMIN C+D [Concomitant]
  7. LEVOCETIRIZE [Concomitant]
  8. BIOTIN [Concomitant]
     Active Substance: BIOTIN
  9. FUROSENIDE [Concomitant]
  10. FISH OIL [Concomitant]
     Active Substance: FISH OIL
  11. ALLOPURINOL 300 MG [Suspect]
     Active Substance: ALLOPURINOL
     Indication: GOUT
     Dosage: 1 PILL DAILY, MOUTH
     Route: 048
     Dates: start: 20160112
  12. GARLIC. [Concomitant]
     Active Substance: GARLIC

REACTIONS (3)
  - Pruritus [None]
  - Skin discolouration [None]
  - Hair colour changes [None]
